FAERS Safety Report 8503668 (Version 3)
Quarter: 2013Q2

REPORT INFORMATION
  Report Type: Report from Study
  Country: MX (occurrence: MX)
  Receive Date: 20120411
  Receipt Date: 20130423
  Transmission Date: 20140414
  Serious: Yes (Death, Other)
  Sender: FDA-Public Use
  Company Number: PHHY2012MX030251

PATIENT
  Age: 80 Year
  Sex: Male

DRUGS (4)
  1. RASILEZ [Suspect]
     Indication: HYPERTENSION
     Dosage: 1 DF (150 MG) DAILY
     Dates: start: 20110317
  2. DABEX XR [Concomitant]
     Indication: DIABETES MELLITUS
     Dosage: 1 DF (750 MG), UNK
     Dates: start: 20120317
  3. IMURAN [Concomitant]
     Dosage: 1 DF (50 MG), UNK
  4. COLCHICINE [Concomitant]
     Dosage: 1 DF (1 MG), UNK

REACTIONS (2)
  - Cardiac arrest [Fatal]
  - Lung disorder [Unknown]
